FAERS Safety Report 6929770-5 (Version None)
Quarter: 2010Q3

REPORT INFORMATION
  Report Type: 
  Country: None (occurrence: None)
  Receive Date: 20100818
  Receipt Date: 20100803
  Transmission Date: 20110219
  Serious: Yes (Other)
  Sender: FDA-Public Use
  Company Number: PHHY2010BR52016

PATIENT
  Sex: Male

DRUGS (6)
  1. STARLIX [Suspect]
     Indication: TYPE 2 DIABETES MELLITUS
     Dosage: 120 MG, BID
     Route: 048
  2. PREDSIM [Concomitant]
     Indication: RENAL TRANSPLANT
     Dosage: 5 MG, TID
     Route: 048
  3. AZATHIOPRINE [Concomitant]
     Indication: RENAL TRANSPLANT
     Dosage: 50 MG, TID
     Route: 048
  4. VASOGARD [Concomitant]
     Indication: HYPERTENSION
     Dosage: 100 MG, BID
     Route: 048
  5. NEXIUM [Concomitant]
     Indication: GASTROOESOPHAGEAL REFLUX DISEASE
     Dosage: 40 MG, QD
     Route: 048
  6. LANSOPRAZOLE [Concomitant]
     Indication: GASTRIC DISORDER
     Dosage: 15 MG, QD
     Route: 048

REACTIONS (7)
  - ACCIDENT [None]
  - DRUG INEFFECTIVE [None]
  - EYE INJURY [None]
  - GLAUCOMA [None]
  - RETINAL DETACHMENT [None]
  - VASCULAR RUPTURE [None]
  - VISION BLURRED [None]
